FAERS Safety Report 8516638-6 (Version None)
Quarter: 2012Q2

REPORT INFORMATION
  Report Type: 
  Country: None (occurrence: None)
  Receive Date: 20120406
  Receipt Date: 20090630
  Transmission Date: 20120825
  Serious: Yes (Life-Threatening, Hospitalization, Other)
  Sender: FDA-Public Use
  Company Number: PHEH2009US04402

PATIENT
  Age: 67 Year
  Sex: Female

DRUGS (13)
  1. VITAMIN B12 [Concomitant]
  2. COMBIVENT [Concomitant]
  3. ZOCOR [Concomitant]
  4. ALTACE [Concomitant]
  5. CENTRUM (MINERALS NOS, VITAMIN NOS) [Concomitant]
  6. SPIRIVA [Concomitant]
  7. QVAR (BECLOMETASONE DIPROPRIONATE) [Concomitant]
  8. LASIX [Concomitant]
  9. XANAX [Concomitant]
  10. TASIGNA [Suspect]
     Indication: CHRONIC MYELOID LEUKAEMIA
     Dosage: 200 MG, Q12H, ORAL
     Route: 048
     Dates: start: 20090408, end: 20090420
  11. KLOR-CON [Concomitant]
  12. CALCIUM CARBONATE [Concomitant]
  13. CENTRAVIT (ASCORBIC ACID, ERGOCALCIFEROL, NICOTINAMIDE, RETINOL, RIBOF [Concomitant]

REACTIONS (7)
  - LIPASE INCREASED [None]
  - BLOOD URINE PRESENT [None]
  - HAEMATOCHEZIA [None]
  - ABDOMINAL PAIN [None]
  - PANCREATITIS [None]
  - BLOOD ALKALINE PHOSPHATASE INCREASED [None]
  - ALANINE AMINOTRANSFERASE INCREASED [None]
